FAERS Safety Report 9385814 (Version 1)
Quarter: 2013Q3

REPORT INFORMATION
  Report Type: Spontaneous
  Country: FR (occurrence: FR)
  Receive Date: 20130705
  Receipt Date: 20130705
  Transmission Date: 20140515
  Serious: Yes (Other)
  Sender: FDA-Public Use
  Company Number: FR-B.I. PHARMACEUTICALS,INC./RIDGEFIELD-2013-FF-01810FF

PATIENT
  Age: 74 Year
  Sex: Male

DRUGS (1)
  1. PRADAXA [Suspect]
     Route: 048
     Dates: start: 201211, end: 20121207

REACTIONS (2)
  - Blood creatinine increased [Recovered/Resolved]
  - Asthenia [Recovered/Resolved]
